FAERS Safety Report 10555008 (Version 3)
Quarter: 2014Q4

REPORT INFORMATION
  Report Type: Spontaneous
  Country: US (occurrence: US)
  Receive Date: 20141030
  Receipt Date: 20141202
  Transmission Date: 20150529
  Serious: Yes (Hospitalization, Other)
  Sender: FDA-Public Use
  Company Number: US-PFIZER INC-2014295854

PATIENT
  Age: 8 Year
  Sex: Female
  Weight: 34.14 kg

DRUGS (3)
  1. MOTRIN [Concomitant]
     Active Substance: IBUPROFEN
     Indication: PYREXIA
     Dosage: 7.5 ML, UNK (7.5ML BY MOUTH EVERY 6 HOURS)
     Route: 048
     Dates: start: 20141013, end: 20141014
  2. AZITHROMYCIN [Suspect]
     Active Substance: AZITHROMYCIN ANHYDROUS
     Dosage: 200 MG, SINGLE
     Route: 048
     Dates: start: 20141016, end: 20141016
  3. AZITHROMYCIN [Suspect]
     Active Substance: AZITHROMYCIN ANHYDROUS
     Indication: SINUSITIS
     Dosage: 400 MG, SINGLE
     Route: 048
     Dates: start: 20141015, end: 20141015

REACTIONS (13)
  - Confusional state [Recovered/Resolved]
  - Urinary incontinence [Recovered/Resolved]
  - Muscle twitching [Unknown]
  - Nervousness [Not Recovered/Not Resolved]
  - Emotional distress [Not Recovered/Not Resolved]
  - Seizure [Recovered/Resolved]
  - Dyskinesia [Not Recovered/Not Resolved]
  - Vomiting [Recovered/Resolved]
  - Inappropriate schedule of drug administration [Unknown]
  - Feeling abnormal [Unknown]
  - Panic attack [Not Recovered/Not Resolved]
  - Loss of consciousness [Recovered/Resolved]
  - Fear [Not Recovered/Not Resolved]

NARRATIVE: CASE EVENT DATE: 20141016
